FAERS Safety Report 5356685-9 (Version None)
Quarter: 2007Q2

REPORT INFORMATION
  Report Type: 
  Country: None (occurrence: None)
  Receive Date: 20070611
  Receipt Date: 20070528
  Transmission Date: 20071010
  Serious: Yes (Death)
  Sender: FDA-Public Use
  Company Number: 0710002

PATIENT
  Sex: Female

DRUGS (1)
  1. NITISINONE/COMPASS USE [Suspect]
     Indication: TYROSINAEMIA
     Dosage: 10 MILLIGRAM A DAY ORAL
     Route: 048
     Dates: start: 20050310

REACTIONS (5)
  - CEREBRAL ISCHAEMIA [None]
  - HEPATIC FAILURE [None]
  - HYPOGLYCAEMIA [None]
  - HYPOXIC ENCEPHALOPATHY [None]
  - SEPTIC SHOCK [None]
